FAERS Safety Report 25097976 (Version 1)
Quarter: 2025Q1

REPORT INFORMATION
  Report Type: Spontaneous
  Country: ZA (occurrence: ZA)
  Receive Date: 20250320
  Receipt Date: 20250320
  Transmission Date: 20250409
  Serious: Yes (Hospitalization, Other)
  Sender: GRANULES PHARMACEUTICALS INC
  Company Number: ZA-GRANULES-ZA-2025GRALIT00119

PATIENT
  Age: 30 Year
  Sex: Male

DRUGS (2)
  1. LAMOTRIGINE [Suspect]
     Active Substance: LAMOTRIGINE
     Indication: Asthma
     Route: 065
  2. LAMOTRIGINE [Suspect]
     Active Substance: LAMOTRIGINE
     Indication: Depression

REACTIONS (2)
  - Restrictive cardiomyopathy [Recovered/Resolved]
  - Product use in unapproved indication [Unknown]
